FAERS Safety Report 7943983-5 (Version None)
Quarter: 2011Q4

REPORT INFORMATION
  Report Type: 
  Country: None (occurrence: None)
  Receive Date: 20111128
  Receipt Date: 20111115
  Transmission Date: 20120403
  Serious: Yes (Other)
  Sender: FDA-Public Use
  Company Number: US-RB-020491-11

PATIENT
  Age: 29 Year
  Sex: Female

DRUGS (6)
  1. ADDERALL 5 [Concomitant]
  2. SUBOXONE [Suspect]
     Indication: DRUG DEPENDENCE
     Dosage: DOSING DETAILS UNKNOWN
     Route: 060
  3. OPIOIDS [Suspect]
     Indication: PRODUCT USED FOR UNKNOWN INDICATION
     Dosage: DOSING INFORMATION UNKNOWN
     Route: 065
  4. SUBOXONE [Suspect]
     Dosage: DOSING INFORMATION UNKNOWN
     Route: 065
  5. SUBOXONE [Suspect]
     Indication: DRUG DEPENDENCE
     Route: 060
     Dates: start: 20100801
  6. SUBUTEX [Suspect]
     Indication: DRUG DEPENDENCE
     Dosage: UNKNOWN DOSING DETAILS
     Route: 065

REACTIONS (32)
  - VOMITING [None]
  - HEADACHE [None]
  - INFLUENZA [None]
  - RASH [None]
  - SWOLLEN TONGUE [None]
  - CONSTIPATION [None]
  - AMBLYOPIA [None]
  - THROAT TIGHTNESS [None]
  - PRURITUS [None]
  - HYPERHIDROSIS [None]
  - DYSPHAGIA [None]
  - DRUG ABUSE [None]
  - TREMOR [None]
  - CHEST PAIN [None]
  - EAR HAEMORRHAGE [None]
  - URTICARIA [None]
  - MATERNAL EXPOSURE DURING PREGNANCY [None]
  - INSOMNIA [None]
  - HYPERSENSITIVITY [None]
  - DYSPNOEA [None]
  - DIZZINESS [None]
  - HEAD INJURY [None]
  - MIGRAINE [None]
  - SWELLING FACE [None]
  - PHARYNGEAL OEDEMA [None]
  - DIARRHOEA [None]
  - CONVULSION [None]
  - DECREASED APPETITE [None]
  - MYALGIA [None]
  - NAUSEA [None]
  - LOSS OF CONSCIOUSNESS [None]
  - SUBSTANCE ABUSE [None]
